FAERS Safety Report 10538391 (Version 1)
Quarter: 2014Q4

REPORT INFORMATION
  Report Type: Spontaneous
  Country: US (occurrence: US)
  Receive Date: 20141023
  Receipt Date: 20141023
  Transmission Date: 20150529
  Serious: Yes (Death, Hospitalization, Other)
  Sender: FDA-Public Use
  Company Number: US-JNJFOC-20141014830

PATIENT
  Age: 59 Year
  Sex: Male
  Weight: 65 kg

DRUGS (12)
  1. BACLOFEN. [Concomitant]
     Active Substance: BACLOFEN
  2. LOPERAMIDE [Concomitant]
     Active Substance: LOPERAMIDE
  3. POTASSIUM CHLORIDE. [Concomitant]
     Active Substance: POTASSIUM CHLORIDE
  4. MIRTAZAPINE. [Concomitant]
     Active Substance: MIRTAZAPINE
  5. TYLENOL [Concomitant]
     Active Substance: ACETAMINOPHEN
  6. ALLOPURINOL. [Concomitant]
     Active Substance: ALLOPURINOL
  7. CAPZASIN HP ARTHRITIS PAIN RELIEF [Concomitant]
     Active Substance: CAPSAICIN
  8. TRAZODONE [Concomitant]
     Active Substance: TRAZODONE HYDROCHLORIDE
  9. IMBRUVICA [Suspect]
     Active Substance: IBRUTINIB
     Indication: MANTLE CELL LYMPHOMA
     Route: 065
     Dates: start: 20140714, end: 20140817
  10. VALPROIC ACID. [Concomitant]
     Active Substance: VALPROIC ACID
  11. QUETIAPINE [Concomitant]
     Active Substance: QUETIAPINE
  12. HYDROXYZINE [Concomitant]
     Active Substance: HYDROXYZINE\HYDROXYZINE HYDROCHLORIDE

REACTIONS (4)
  - Blood lactate dehydrogenase increased [Unknown]
  - Central nervous system haemorrhage [Fatal]
  - Leukocytosis [Unknown]
  - Blood uric acid increased [Unknown]

NARRATIVE: CASE EVENT DATE: 20140819
